FAERS Safety Report 23272981 (Version 1)
Quarter: 2023Q4

REPORT INFORMATION
  Report Type: Spontaneous
  Country: DE (occurrence: DE)
  Receive Date: 20231207
  Receipt Date: 20231207
  Transmission Date: 20240110
  Serious: Yes (Hospitalization)
  Sender: FDA-Public Use
  Company Number: None

PATIENT
  Age: 35 Year
  Sex: Female
  Weight: 55 kg

DRUGS (1)
  1. OCREVUS [Suspect]
     Active Substance: OCRELIZUMAB
     Indication: Multiple sclerosis
     Dosage: 600MG IV AT 6AM
     Route: 042
     Dates: start: 20190718

REACTIONS (2)
  - Headache [Recovered/Resolved]
  - Meningitis haemophilus [Recovered/Resolved]

NARRATIVE: CASE EVENT DATE: 20231029
